FAERS Safety Report 8803255 (Version 1)
Quarter: 2012Q4

REPORT INFORMATION
  Report Type: Report from Study
  Country: CA (occurrence: CA)
  Receive Date: 20120924
  Receipt Date: 20120924
  Transmission Date: 20130627
  Serious: Yes (Other)
  Sender: FDA-Public Use
  Company Number: CA-JNJFOC-20120905774

PATIENT
  Age: 23 Year
  Sex: Male
  Weight: 89 kg

DRUGS (1)
  1. REMICADE [Suspect]
     Indication: UVEITIS
     Route: 042
     Dates: start: 2009

REACTIONS (1)
  - Lower limb fracture [Unknown]
